APPROVED DRUG PRODUCT: EMBLAVEO
Active Ingredient: AVIBACTAM SODIUM; AZTREONAM
Strength: EQ 0.5GM BASE/VIAL;1.5GM/VIAL
Dosage Form/Route: POWDER;INTRAVENOUS
Application: N217906 | Product #001
Applicant: ABBVIE INC
Approved: Feb 7, 2025 | RLD: Yes | RS: Yes | Type: RX

PATENTS:
Patent 7112592 | Expires: Jan 7, 2026
Patent 8969566 | Expires: Jun 15, 2032
Patent 8835455 | Expires: Oct 8, 2030
Patent 9695122 | Expires: Jun 15, 2032
Patent 7612087 | Expires: Nov 12, 2026
Patent 8471025 | Expires: Aug 12, 2031
Patent 9284314 | Expires: Jun 15, 2032

EXCLUSIVITY:
Code: NP | Date: Feb 7, 2028
Code: GAIN | Date: Feb 7, 2033